FAERS Safety Report 21816341 (Version 1)
Quarter: 2023Q1

REPORT INFORMATION
  Report Type: Spontaneous
  Country: US (occurrence: None)
  Receive Date: 20230103
  Receipt Date: 20230103
  Transmission Date: 20230417
  Serious: No
  Sender: FDA-Public Use
  Company Number: None

PATIENT
  Sex: Male
  Weight: 104.33 kg

DRUGS (20)
  1. ABIRATERONE ACETATE [Suspect]
     Active Substance: ABIRATERONE ACETATE
  2. ALLOPURINOL [Concomitant]
     Active Substance: ALLOPURINOL
  3. ASPIRIN [Concomitant]
     Active Substance: ASPIRIN
  4. ATORVASTATIN [Concomitant]
     Active Substance: ATORVASTATIN
  5. BRILINTA [Concomitant]
     Active Substance: TICAGRELOR
  6. CALCIUM\VITAMIN D [Concomitant]
     Active Substance: CALCIUM\VITAMIN D
  7. ESCITALOPRAM [Concomitant]
     Active Substance: ESCITALOPRAM OXALATE
  8. GLIPIZIDE [Concomitant]
     Active Substance: GLIPIZIDE
  9. INSULIN NOS [Concomitant]
     Active Substance: INSULIN NOS
  10. IRBESARTAN [Concomitant]
     Active Substance: IRBESARTAN
  11. JANUMET [Concomitant]
     Active Substance: METFORMIN HYDROCHLORIDE\SITAGLIPTIN PHOSPHATE
  12. LEVOTHYROXINE [Concomitant]
     Active Substance: LEVOTHYROXINE
  13. MAGNESIUM CARBONATE [Concomitant]
     Active Substance: MAGNESIUM CARBONATE
  14. METOPROLOL [Concomitant]
     Active Substance: METOPROLOL
  15. NITROGLYCERIN [Concomitant]
     Active Substance: NITROGLYCERIN
  16. POTASSIUM CHLORIDE [Concomitant]
     Active Substance: POTASSIUM CHLORIDE
  17. PREDNISONE [Concomitant]
     Active Substance: PREDNISONE
  18. SPIRIVA [Concomitant]
     Active Substance: TIOTROPIUM BROMIDE MONOHYDRATE
  19. TYLENOL 8HR [Concomitant]
     Active Substance: ACETAMINOPHEN
  20. VITAMIN B12 [Concomitant]
     Active Substance: CYANOCOBALAMIN

REACTIONS (1)
  - Blood bilirubin increased [None]
